FAERS Safety Report 4268594-7 (Version None)
Quarter: 2004Q1

REPORT INFORMATION
  Report Type: 
  Country: None (occurrence: None)
  Receive Date: 20040108
  Receipt Date: 20031231
  Transmission Date: 20041129
  Serious: Yes (Other)
  Sender: FDA-Public Use
  Company Number: K200301950

PATIENT
  Age: 70 Year
  Sex: Female

DRUGS (7)
  1. ALTACE [Suspect]
     Dosage: 10 MG,QD
     Dates: start: 20031205, end: 20031208
  2. ATORVASTATIN [Concomitant]
  3. DILTIAZEM HYDROCHLORIDE [Concomitant]
  4. ASPIRIN [Concomitant]
  5. NIQUITIN CQ (NICOTINE) [Concomitant]
  6. ESOMEPRAZOLE [Concomitant]
  7. CO-CODAMOL (CODEINE PHOSPHATE, PARACETAMOL) [Concomitant]

REACTIONS (4)
  - BLOOD PRESSURE INCREASED [None]
  - FLUSHING [None]
  - PAIN [None]
  - SWELLING FACE [None]
